FAERS Safety Report 9002694 (Version 1)
Quarter: 2013Q1

REPORT INFORMATION
  Report Type: Spontaneous
  Country: US (occurrence: US)
  Receive Date: 20130107
  Receipt Date: 20130107
  Transmission Date: 20140127
  Serious: No
  Sender: FDA-Public Use
  Company Number: US-GLAXOSMITHKLINE-A0972687A

PATIENT
  Sex: Female
  Weight: 85.35 kg

DRUGS (12)
  1. BENLYSTA [Suspect]
     Indication: SYSTEMIC LUPUS ERYTHEMATOSUS
     Route: 042
     Dates: start: 20120103
  2. HYDROXYCHLOROQUINE [Concomitant]
     Dosage: 200MG PER DAY
  3. ANTARA [Concomitant]
     Dosage: 75MG PER DAY
  4. SINGULAIR [Concomitant]
     Indication: HYPERSENSITIVITY
  5. CYMBALTA [Concomitant]
     Indication: PAIN
     Dosage: 120MG PER DAY
  6. CENTRUM [Concomitant]
  7. VITAMIN E [Concomitant]
  8. FISH OIL [Concomitant]
  9. POTASSIUM [Concomitant]
  10. SYNTHROID [Concomitant]
     Indication: HYPOTHYROIDISM
     Dosage: 50MCG PER DAY
  11. FUROSEMIDE [Concomitant]
     Dosage: 20MG PER DAY
  12. CALCIUM [Concomitant]

REACTIONS (2)
  - Device related infection [Recovered/Resolved]
  - Rash [Recovering/Resolving]
